FAERS Safety Report 6360889-6 (Version None)
Quarter: 2009Q3

REPORT INFORMATION
  Report Type: 
  Country: None (occurrence: None)
  Receive Date: 20090915
  Receipt Date: 20090915
  Transmission Date: 20100115
  Serious: Yes (Death)
  Sender: FDA-Public Use
  Company Number: None

PATIENT
  Age: 86 Year
  Sex: Female
  Weight: 59.4 kg

DRUGS (1)
  1. MACRODANTIN [Suspect]
     Dates: start: 20090601, end: 20090602

REACTIONS (7)
  - DRUG HYPERSENSITIVITY [None]
  - HEPATIC NECROSIS [None]
  - HEPATITIS ACUTE [None]
  - KLEBSIELLA INFECTION [None]
  - NO THERAPEUTIC RESPONSE [None]
  - SEPSIS [None]
  - URINARY TRACT INFECTION BACTERIAL [None]
